FAERS Safety Report 23666531 (Version 3)
Quarter: 2024Q2

REPORT INFORMATION
  Report Type: Spontaneous
  Country: US (occurrence: US)
  Receive Date: 20240324
  Receipt Date: 20240527
  Transmission Date: 20240716
  Serious: Yes (Other)
  Sender: FDA-Public Use
  Company Number: US-BEH-2024169822

PATIENT
  Age: 62 Year
  Sex: Female

DRUGS (25)
  1. PRIVIGEN [Suspect]
     Active Substance: HUMAN IMMUNOGLOBULIN G
     Indication: Humoral immune defect
     Dosage: 25 GRAM, QMT
     Route: 042
  2. PRIVIGEN [Suspect]
     Active Substance: HUMAN IMMUNOGLOBULIN G
     Indication: Immunodeficiency common variable
     Dosage: 25 GRAM, QMT
     Route: 042
  3. PILOCARPINE [Concomitant]
     Active Substance: PILOCARPINE
     Dosage: 7.5 MG
  4. ATROPINE SULFATE [Concomitant]
     Active Substance: ATROPINE SULFATE
  5. ALPHAGAN P [Concomitant]
     Active Substance: BRIMONIDINE TARTRATE
  6. LUMIGAN [Concomitant]
     Active Substance: BIMATOPROST
  7. PREDNISOLONE [Concomitant]
     Active Substance: PREDNISOLONE
  8. BRIMONIDINE TARTRATE [Concomitant]
     Active Substance: BRIMONIDINE TARTRATE
  9. DORZOLAMIDE HYDROCHLORIDE [Concomitant]
     Active Substance: DORZOLAMIDE HYDROCHLORIDE
  10. PROPRANOLOL HYDROCHLORIDE [Concomitant]
     Active Substance: PROPRANOLOL HYDROCHLORIDE
  11. ABILIFY [Concomitant]
     Active Substance: ARIPIPRAZOLE
  12. AZATHIOPRINE [Concomitant]
     Active Substance: AZATHIOPRINE
  13. BYSTOLIC [Concomitant]
     Active Substance: NEBIVOLOL HYDROCHLORIDE
     Dosage: 2.5 MG
  14. CYMBALTA [Concomitant]
     Active Substance: DULOXETINE HYDROCHLORIDE
     Dosage: 60 MG
  15. DICYCLOMINE [Concomitant]
     Active Substance: DICYCLOMINE HYDROCHLORIDE
     Dosage: 20 MG
  16. EVOXAC [Concomitant]
     Active Substance: CEVIMELINE HYDROCHLORIDE
  17. HYDROCORTISON TAB [HYDROCORTISONE] [Concomitant]
     Dosage: 10 MG
  18. HYDROCORTISON TAB [HYDROCORTISONE] [Concomitant]
     Dosage: 20 UNK
  19. LEVOTHYROXINE [Concomitant]
     Active Substance: LEVOTHYROXINE\LEVOTHYROXINE SODIUM
     Dosage: 50 UG
  20. LUNESTA [Concomitant]
     Active Substance: ESZOPICLONE
     Dosage: 3 MG
  21. OMEPRAZOLE [Concomitant]
     Active Substance: DONEPEZIL HYDROCHLORIDE\OMEPRAZOLE\OMEPRAZOLE MAGNESIUM
     Dosage: 20 MG
  22. PROMETHAZINE [Concomitant]
     Active Substance: PROMETHAZINE HYDROCHLORIDE
     Dosage: 25 MG
  23. TOPIRAMATE [Concomitant]
     Active Substance: TOPIRAMATE
     Dosage: 50 MG
  24. TRAMADOL HCL [Concomitant]
     Active Substance: TRAMADOL HYDROCHLORIDE
     Dosage: 50 MG
  25. ZOFRAN [Concomitant]
     Active Substance: ONDANSETRON HYDROCHLORIDE
     Dosage: 4 MG

REACTIONS (14)
  - Sjogren^s syndrome [Unknown]
  - Sinusitis [Recovered/Resolved]
  - Sleep disorder [Unknown]
  - Circadian rhythm sleep disorder [Unknown]
  - Headache [Unknown]
  - Fall [Unknown]
  - Concussion [Unknown]
  - Hypersomnia [Unknown]
  - Migraine [Not Recovered/Not Resolved]
  - Nasal congestion [Not Recovered/Not Resolved]
  - Skin laceration [Recovered/Resolved]
  - Head injury [Recovered/Resolved]
  - Nasal injury [Recovered/Resolved]
  - Rhinitis [Recovered/Resolved]

NARRATIVE: CASE EVENT DATE: 20240301
